FAERS Safety Report 6824423-6 (Version None)
Quarter: 2010Q3

REPORT INFORMATION
  Report Type: 
  Country: None (occurrence: None)
  Receive Date: 20100708
  Receipt Date: 20061025
  Transmission Date: 20110219
  Serious: No
  Sender: FDA-Public Use
  Company Number: US-PFIZER INC-2006132225

PATIENT
  Sex: Female
  Weight: 51.71 kg

DRUGS (4)
  1. CHANTIX [Suspect]
     Dates: start: 20061016
  2. COZAAR [Concomitant]
  3. COREG [Concomitant]
  4. CARTIA XT [Concomitant]

REACTIONS (4)
  - ABDOMINAL PAIN UPPER [None]
  - ERUCTATION [None]
  - NAUSEA [None]
  - VOMITING [None]
